FAERS Safety Report 7493529-3 (Version None)
Quarter: 2011Q2

REPORT INFORMATION
  Report Type: 
  Country: None (occurrence: None)
  Receive Date: 20110520
  Receipt Date: 20110517
  Transmission Date: 20111010
  Serious: Yes (Hospitalization, Other)
  Sender: FDA-Public Use
  Company Number: US-PFIZER INC-2011075225

PATIENT
  Sex: Female

DRUGS (5)
  1. GEODON [Suspect]
     Indication: DEPRESSION
  2. LUNESTA [Concomitant]
     Dosage: 3 MG, 1X/DAY, HS
     Route: 048
     Dates: start: 20101011
  3. GEODON [Suspect]
     Indication: AFFECTIVE DISORDER
     Dosage: 80 MG AT HOURS SLEEP, 20 MG IN THE MORNING
     Route: 048
     Dates: start: 20100914, end: 20110331
  4. LAMOTRIGINE [Concomitant]
     Dosage: 100 MG, 1X/DAY
     Dates: start: 20100815
  5. PRAZOSIN [Concomitant]
     Dosage: 2 MG, 2X/DAY
     Route: 048
     Dates: start: 20110106

REACTIONS (7)
  - DYSTONIA [None]
  - CEREBROVASCULAR ACCIDENT [None]
  - HYPERTONIA [None]
  - TRANSIENT ISCHAEMIC ATTACK [None]
  - CONVULSION [None]
  - DYSKINESIA [None]
  - PSYCHOMOTOR SKILLS IMPAIRED [None]
